FAERS Safety Report 13327098 (Version 1)
Quarter: 2017Q1

REPORT INFORMATION
  Report Type: Spontaneous
  Country: JP (occurrence: JP)
  Receive Date: 20170313
  Receipt Date: 20170313
  Transmission Date: 20170428
  Serious: Yes (Other)
  Sender: FDA-Public Use
  Company Number: JP-ROCHE-1903143

PATIENT
  Age: 2 Year
  Sex: Male

DRUGS (2)
  1. ANHIBA [Concomitant]
     Active Substance: ACETAMINOPHEN
     Dosage: DOSAGE IS UNCERTAIN.
     Route: 048
  2. TAMIFLU [Suspect]
     Active Substance: OSELTAMIVIR PHOSPHATE
     Indication: INFLUENZA
     Dosage: MOST RECENT DOSE: 20/FEB/2017
     Route: 048
     Dates: start: 20170218

REACTIONS (3)
  - Crying [Unknown]
  - Mood altered [Unknown]
  - Abnormal behaviour [Unknown]

NARRATIVE: CASE EVENT DATE: 20170218
